FAERS Safety Report 14379750 (Version 1)
Quarter: 2018Q1

REPORT INFORMATION
  Report Type: Spontaneous
  Country: GB (occurrence: GB)
  Receive Date: 20180112
  Receipt Date: 20180112
  Transmission Date: 20180509
  Serious: Yes (Disabling)
  Sender: FDA-Public Use
  Company Number: GB-AUROBINDO-AUR-APL-2018-001866

PATIENT
  Age: 37 Year
  Sex: Female
  Weight: 48 kg

DRUGS (3)
  1. ABACAVIR+LAMIVUDINE [Suspect]
     Active Substance: ABACAVIR SULFATE\LAMIVUDINE
     Indication: ASYMPTOMATIC HIV INFECTION
     Dosage: 1 DF, DAILY
     Route: 048
     Dates: start: 201703, end: 201711
  2. NEVIRAPINE. [Concomitant]
     Active Substance: NEVIRAPINE
     Indication: PRODUCT USED FOR UNKNOWN INDICATION
     Route: 065
  3. KIVEXA [Concomitant]
     Active Substance: ABACAVIR SULFATE\LAMIVUDINE
     Indication: PRODUCT USED FOR UNKNOWN INDICATION
     Route: 065

REACTIONS (3)
  - Product substitution issue [Unknown]
  - Pharyngeal ulceration [Recovered/Resolved]
  - Mouth ulceration [Recovered/Resolved]

NARRATIVE: CASE EVENT DATE: 201703
